FAERS Safety Report 9460282 (Version 3)
Quarter: 2013Q4

REPORT INFORMATION
  Report Type: Spontaneous
  Country: US (occurrence: US)
  Receive Date: 20130815
  Receipt Date: 20131007
  Transmission Date: 20140711
  Serious: Yes (Hospitalization, Other)
  Sender: FDA-Public Use
  Company Number: US-JNJFOC-20130805715

PATIENT
  Age: 80 Year
  Sex: Female

DRUGS (9)
  1. REMICADE [Suspect]
     Indication: CROHN^S DISEASE
     Route: 042
     Dates: start: 20130701
  2. REMICADE [Suspect]
     Indication: CROHN^S DISEASE
     Route: 042
     Dates: start: 20130417
  3. REMICADE [Suspect]
     Indication: CROHN^S DISEASE
     Route: 042
     Dates: start: 20130729, end: 20130729
  4. CANASA [Concomitant]
     Indication: COLITIS ULCERATIVE
     Route: 065
  5. CANASA [Concomitant]
     Indication: PROCTITIS
     Route: 065
  6. ROWASA [Concomitant]
     Indication: COLITIS ULCERATIVE
     Dosage: BED TIME
     Route: 065
  7. ROWASA [Concomitant]
     Indication: PROCTITIS
     Dosage: BED TIME
     Route: 065
  8. DILTIAZEM [Concomitant]
     Indication: HYPERTENSION
     Route: 065
  9. LEVOTHYROXINE [Concomitant]
     Indication: HYPOTHYROIDISM
     Dosage: DAILY
     Route: 065

REACTIONS (5)
  - Loss of consciousness [Recovered/Resolved]
  - Presyncope [Recovered/Resolved]
  - Bradycardia [Recovered/Resolved]
  - Infusion related reaction [Recovered/Resolved]
  - Hypotension [Recovered/Resolved]
